FAERS Safety Report 4435302-6 (Version None)
Quarter: 2004Q3

REPORT INFORMATION
  Report Type: 
  Country: None (occurrence: None)
  Receive Date: 20040827
  Receipt Date: 20040827
  Transmission Date: 20050211
  Serious: Yes (Life-Threatening)
  Sender: FDA-Public Use
  Company Number: None

PATIENT
  Age: 80 Year
  Sex: Male
  Weight: 113.5 kg

DRUGS (1)
  1. PROTAMINE 10 MG /ML [Suspect]
     Indication: CARDIAC OPERATION
     Dosage: 100 MG ONE DOSE IV
     Route: 042
     Dates: start: 20040826, end: 20040826

REACTIONS (3)
  - BLOOD PRESSURE IMMEASURABLE [None]
  - HYPOTENSION [None]
  - PROCEDURAL COMPLICATION [None]
